FAERS Safety Report 25195272 (Version 1)
Quarter: 2025Q2

REPORT INFORMATION
  Report Type: Report from Study
  Country: KR (occurrence: KR)
  Receive Date: 20250415
  Receipt Date: 20250415
  Transmission Date: 20250717
  Serious: Yes (Other)
  Sender: JOHNSON AND JOHNSON
  Company Number: KR-JNJFOC-20240606448

PATIENT
  Age: 25 Year
  Sex: Female

DRUGS (3)
  1. MACITENTAN [Suspect]
     Active Substance: MACITENTAN
     Indication: Pulmonary arterial hypertension
     Route: 048
     Dates: start: 20240514
  2. LASIX [Suspect]
     Active Substance: FUROSEMIDE
     Indication: Product used for unknown indication
     Route: 065
  3. SPIRONOLACTONE [Concomitant]
     Active Substance: SPIRONOLACTONE

REACTIONS (12)
  - Atrial septal defect [Unknown]
  - Pain in extremity [Unknown]
  - Chest pain [Unknown]
  - Paraesthesia [Unknown]
  - Palpitations [Not Recovered/Not Resolved]
  - Sleep disorder [Unknown]
  - Headache [Unknown]
  - Brain fog [Unknown]
  - Limb discomfort [Unknown]
  - Chest discomfort [Unknown]
  - Treatment noncompliance [Unknown]
  - Cardiovascular disorder [Not Recovered/Not Resolved]

NARRATIVE: CASE EVENT DATE: 20240601
